FAERS Safety Report 11094364 (Version 1)
Quarter: 2015Q2

REPORT INFORMATION
  Report Type: Spontaneous
  Country: US (occurrence: None)
  Receive Date: 20150428
  Receipt Date: 20150428
  Transmission Date: 20150821
  Serious: Yes (Disabling)
  Sender: FDA-Public Use
  Company Number: PHEH2014US002889

PATIENT
  Age: 31 Year
  Sex: Female
  Weight: 47.2 kg

DRUGS (6)
  1. GILENYA [Suspect]
     Active Substance: FINGOLIMOD HYDROCHLORIDE
     Indication: MULTIPLE SCLEROSIS
     Route: 048
     Dates: start: 20130829, end: 20140209
  2. VITAMIN D (ERGOCALCIFEROL) [Concomitant]
     Active Substance: ERGOCALCIFEROL
  3. LEXAPRO [Concomitant]
     Active Substance: ESCITALOPRAM OXALATE
  4. ZYRTEC [Concomitant]
     Active Substance: CETIRIZINE HYDROCHLORIDE
  5. TRAZODONE [Concomitant]
     Active Substance: TRAZODONE HYDROCHLORIDE
  6. MULTI-VIT (VITAMIN NOS) [Concomitant]

REACTIONS (7)
  - Lymphocyte count decreased [None]
  - Herpes zoster [None]
  - Lymphocyte percentage decreased [None]
  - Ocular hyperaemia [None]
  - Lacrimation increased [None]
  - Rash [None]
  - Trigeminal neuralgia [None]

NARRATIVE: CASE EVENT DATE: 20140209
